FAERS Safety Report 7402744-6 (Version None)
Quarter: 2011Q2

REPORT INFORMATION
  Report Type: 
  Country: None (occurrence: None)
  Receive Date: 20110408
  Receipt Date: 20110329
  Transmission Date: 20111010
  Serious: Yes (Hospitalization, Other)
  Sender: FDA-Public Use
  Company Number: RU-ROCHE-767799

PATIENT
  Age: 40 Year
  Sex: Male

DRUGS (1)
  1. XENICAL [Suspect]
     Indication: OVERWEIGHT
     Dosage: FREQUENCY: DAILY
     Route: 048
     Dates: start: 20110216, end: 20110302

REACTIONS (2)
  - OEDEMA PERIPHERAL [None]
  - BRONCHITIS [None]
